FAERS Safety Report 23309115 (Version 2)
Quarter: 2023Q4

REPORT INFORMATION
  Report Type: Spontaneous
  Country: DE (occurrence: DE)
  Receive Date: 20231218
  Receipt Date: 20231222
  Transmission Date: 20240109
  Serious: Yes (Life-Threatening, Other)
  Sender: FDA-Public Use
  Company Number: DE-009507513-2307DEU009320

PATIENT
  Age: 48 Year
  Sex: Female
  Weight: 59 kg

DRUGS (5)
  1. CARBOPLATIN [Suspect]
     Active Substance: CARBOPLATIN
     Indication: Triple negative breast cancer
     Dosage: UNK
     Route: 065
     Dates: start: 20221212, end: 20230620
  2. CYCLOPHOSPHAMIDE [Suspect]
     Active Substance: CYCLOPHOSPHAMIDE
     Indication: Triple negative breast cancer
     Dosage: UNK
     Route: 065
     Dates: start: 20221212, end: 20230620
  3. EPIRUBICIN [Suspect]
     Active Substance: EPIRUBICIN
     Indication: Triple negative breast cancer
     Dosage: UNK
     Route: 065
     Dates: start: 20221212, end: 20230620
  4. KEYTRUDA [Suspect]
     Active Substance: PEMBROLIZUMAB
     Indication: Triple negative breast cancer
     Dosage: 200 MILLIGRAM, EVERY 3 WEEKS (Q3W)
     Route: 065
     Dates: start: 20221212, end: 20230620
  5. PACLITAXEL [Suspect]
     Active Substance: PACLITAXEL
     Indication: Triple negative breast cancer
     Dosage: UNK
     Route: 065
     Dates: start: 20221212, end: 20230620

REACTIONS (16)
  - Hypothyroidism [Recovering/Resolving]
  - Immune-mediated hypophysitis [Recovering/Resolving]
  - Immune-mediated adrenal insufficiency [Recovering/Resolving]
  - Radiotherapy [Unknown]
  - Mastoid disorder [Unknown]
  - Blood calcium abnormal [Unknown]
  - CSF volume increased [Unknown]
  - Paranasal sinus hypersecretion [Unknown]
  - Pituitary enlargement [Unknown]
  - Pituitary tumour benign [Unknown]
  - General physical health deterioration [Unknown]
  - C-reactive protein abnormal [Unknown]
  - Lymphocyte count abnormal [Unknown]
  - Red blood cell abnormality [Unknown]
  - Haematocrit abnormal [Unknown]
  - Haemoglobin abnormal [Unknown]

NARRATIVE: CASE EVENT DATE: 20230101
